FAERS Safety Report 7067904-5 (Version None)
Quarter: 2010Q4

REPORT INFORMATION
  Report Type: 
  Country: None (occurrence: None)
  Receive Date: 20101028
  Receipt Date: 20101020
  Transmission Date: 20110411
  Serious: Yes (Other)
  Sender: FDA-Public Use
  Company Number: PL-BAXTER-2010BH025777

PATIENT
  Age: 15 Year
  Sex: Male
  Weight: 52 kg

DRUGS (3)
  1. GAMMAGARD LIQUID [Suspect]
     Indication: THROMBOCYTOPENIA
     Route: 042
     Dates: start: 20100915, end: 20100915
  2. RUTINOSCORBIN [Concomitant]
     Indication: PRODUCT USED FOR UNKNOWN INDICATION
     Route: 048
  3. CYCLONAMINE [Concomitant]
     Indication: PRODUCT USED FOR UNKNOWN INDICATION

REACTIONS (2)
  - DYSPNOEA [None]
  - HYPERHIDROSIS [None]
